FAERS Safety Report 20289868 (Version 3)
Quarter: 2022Q1

REPORT INFORMATION
  Report Type: Spontaneous
  Country: US (occurrence: US)
  Receive Date: 20220104
  Receipt Date: 20220120
  Transmission Date: 20220423
  Serious: Yes (Other)
  Sender: FDA-Public Use
  Company Number: US-BEH-2021139998

PATIENT
  Age: 72 Year
  Sex: Female
  Weight: 72.5 kg

DRUGS (8)
  1. HIZENTRA [Suspect]
     Active Substance: HUMAN IMMUNOGLOBULIN G
     Indication: Immunodeficiency common variable
     Dosage: 12 GRAM, QW
     Route: 058
     Dates: start: 20130311
  2. HIZENTRA [Suspect]
     Active Substance: HUMAN IMMUNOGLOBULIN G
     Dosage: UNK
     Route: 058
     Dates: start: 20211110
  3. HIZENTRA [Suspect]
     Active Substance: HUMAN IMMUNOGLOBULIN G
     Dosage: UNK
     Route: 058
     Dates: start: 20211117
  4. HIZENTRA [Suspect]
     Active Substance: HUMAN IMMUNOGLOBULIN G
     Dosage: UNK
     Route: 058
     Dates: start: 20211123
  5. HIZENTRA [Suspect]
     Active Substance: HUMAN IMMUNOGLOBULIN G
     Dosage: UNK
     Route: 065
     Dates: start: 20211111
  6. HIZENTRA [Suspect]
     Active Substance: HUMAN IMMUNOGLOBULIN G
     Dosage: UNK
     Route: 065
     Dates: start: 20211118
  7. HIZENTRA [Suspect]
     Active Substance: HUMAN IMMUNOGLOBULIN G
     Dosage: UNK
     Route: 065
     Dates: start: 20211111
  8. HIZENTRA [Suspect]
     Active Substance: HUMAN IMMUNOGLOBULIN G
     Dosage: UNK
     Route: 065
     Dates: start: 20211118

REACTIONS (31)
  - Injection site urticaria [Unknown]
  - Injection site erythema [Unknown]
  - Injection site rash [Unknown]
  - Injection site pruritus [Unknown]
  - Injection site urticaria [Unknown]
  - Injection site rash [Unknown]
  - Injection site pruritus [Unknown]
  - Injection site urticaria [Unknown]
  - Injection site rash [Unknown]
  - Injection site pruritus [Unknown]
  - Injection site erythema [Unknown]
  - Pruritus [Unknown]
  - Recalled product administered [Unknown]
  - Pain [Unknown]
  - Recalled product administered [Unknown]
  - Erythema [Unknown]
  - Recalled product administered [Unknown]
  - Swelling [Unknown]
  - Recalled product administered [Unknown]
  - Urticaria [Unknown]
  - Recalled product administered [Unknown]
  - Urticaria [Unknown]
  - Recalled product administered [Unknown]
  - Swelling [Unknown]
  - Recalled product administered [Unknown]
  - Erythema [Unknown]
  - Recalled product administered [Unknown]
  - Pain [Unknown]
  - Recalled product administered [Unknown]
  - Pruritus [Unknown]
  - Recalled product administered [Unknown]

NARRATIVE: CASE EVENT DATE: 20211110
